FAERS Safety Report 7190670-X (Version None)
Quarter: 2010Q4

REPORT INFORMATION
  Report Type: 
  Country: None (occurrence: None)
  Receive Date: 20101223
  Receipt Date: 20101220
  Transmission Date: 20110411
  Serious: Yes (Other)
  Sender: FDA-Public Use
  Company Number: US-PFIZER INC-2010128803

PATIENT
  Sex: Female

DRUGS (4)
  1. GEODON [Suspect]
     Dosage: 40 MG, 1X/DAY
     Route: 048
     Dates: start: 20100913, end: 20100915
  2. LAMICTAL [Concomitant]
     Dosage: UNK
  3. KLONOPIN [Concomitant]
     Dosage: UNK
  4. VYVANSE [Concomitant]
     Dosage: UNK
     Dates: start: 20100818

REACTIONS (4)
  - DRUG INTOLERANCE [None]
  - MALAISE [None]
  - NAUSEA [None]
  - VOMITING [None]
